FAERS Safety Report 20147855 (Version 1)
Quarter: 2021Q4

REPORT INFORMATION
  Report Type: Spontaneous
  Country: US (occurrence: US)
  Receive Date: 20211203
  Receipt Date: 20211203
  Transmission Date: 20220303
  Serious: Yes (Death, Hospitalization)
  Sender: FDA-Public Use
  Company Number: US-NOVARTISPH-NVSC2021US274647

PATIENT
  Age: 59 Year
  Sex: Male

DRUGS (2)
  1. RANITIDINE [Suspect]
     Active Substance: RANITIDINE
     Indication: Dyspepsia
     Dosage: 150 MG, TID
     Route: 048
     Dates: start: 201701, end: 202003
  2. RANITIDINE [Suspect]
     Active Substance: RANITIDINE
     Indication: Dyspepsia
     Dosage: 150 MG, TID
     Route: 048
     Dates: start: 201701, end: 202003

REACTIONS (4)
  - Oesophageal carcinoma [Fatal]
  - Hepatic cancer stage IV [Fatal]
  - Lung carcinoma cell type unspecified stage IV [Fatal]
  - Gastric cancer stage IV [Fatal]

NARRATIVE: CASE EVENT DATE: 20200307
